FAERS Safety Report 6808881-9 (Version None)
Quarter: 2010Q2

REPORT INFORMATION
  Report Type: 
  Country: None (occurrence: None)
  Receive Date: 20100630
  Receipt Date: 20090928
  Transmission Date: 20101027
  Serious: No
  Sender: FDA-Public Use
  Company Number: US-PFIZER INC-2009277615

PATIENT
  Sex: Female

DRUGS (2)
  1. XANAX [Suspect]
  2. ZOLOFT [Suspect]
     Dosage: UNK

REACTIONS (3)
  - CHILLS [None]
  - PARAESTHESIA [None]
  - TREMOR [None]
